FAERS Safety Report 9306951 (Version 1)
Quarter: 2013Q2

REPORT INFORMATION
  Report Type: Spontaneous
  Country: US (occurrence: US)
  Receive Date: 20130523
  Receipt Date: 20130523
  Transmission Date: 20140414
  Serious: No
  Sender: FDA-Public Use
  Company Number: US-AMGEN-USASP2013007188

PATIENT
  Age: 52 Year
  Sex: Male

DRUGS (3)
  1. EPOGEN [Suspect]
     Indication: RENAL FAILURE CHRONIC
     Dosage: 40000 UNIT, QWK
     Route: 058
     Dates: start: 201201
  2. ARANESP [Suspect]
     Dosage: UNK
  3. L-CARNITINE                        /00878601/ [Concomitant]
     Dosage: UNK

REACTIONS (2)
  - Therapeutic response decreased [Unknown]
  - Haemoglobin abnormal [Unknown]
